FAERS Safety Report 15155070 (Version 1)
Quarter: 2018Q3

REPORT INFORMATION
  Report Type: Spontaneous
  Country: US (occurrence: US)
  Receive Date: 20180717
  Receipt Date: 20180717
  Transmission Date: 20181010
  Serious: No
  Sender: FDA-Public Use
  Company Number: US-009507513-1512USA006619

PATIENT
  Age: 35 Year
  Sex: Female

DRUGS (6)
  1. ZIDOVUDINE. [Suspect]
     Active Substance: ZIDOVUDINE
     Dosage: TOTAL DAILY DOSE 600
     Route: 048
  2. RITONAVIR. [Suspect]
     Active Substance: RITONAVIR
     Dosage: TOTAL DAILY DOSE: 200
     Route: 048
  3. EMTRICITABINE (+) TENOFOVIR DISOPROXIL FUMARATE [Suspect]
     Active Substance: EMTRICITABINE\TENOFOVIR DISOPROXIL
     Dosage: TOTAL DAILY DOSE 500
     Route: 048
  4. ATAZANAVIR. [Suspect]
     Active Substance: ATAZANAVIR SULFATE
     Dosage: TOTAL DAILY DOSE: 300
     Route: 048
  5. DARUNAVIR [Suspect]
     Active Substance: DARUNAVIR
     Dosage: TOTAL DAILY DOSE 1600
     Route: 048
  6. ISENTRESS [Suspect]
     Active Substance: RALTEGRAVIR POTASSIUM
     Dosage: TOTAL DAILY DOSE:300
     Route: 048

REACTIONS (2)
  - Maternal exposure during pregnancy [Recovered/Resolved]
  - Premature labour [Unknown]
